FAERS Safety Report 7633235-5 (Version None)
Quarter: 2011Q3

REPORT INFORMATION
  Report Type: 
  Country: None (occurrence: None)
  Receive Date: 20110718
  Receipt Date: 20110701
  Transmission Date: 20111222
  Serious: Yes (Other)
  Sender: FDA-Public Use
  Company Number: AUR-APL-2011-01642

PATIENT
  Age: 18 Year
  Sex: Female
  Weight: 46.26 kg

DRUGS (4)
  1. CALCITRIOL [Concomitant]
  2. FINASTERIDE [Suspect]
     Indication: PRODUCT USED FOR UNKNOWN INDICATION
  3. CITALOPRAM (CITALOPRAM) [Suspect]
     Indication: DEPRESSION
     Dosage: 10 MG (10 MG, 1 IN 1 D), ORAL; 10MG IN THE MORNING AND 5 MG IN THE EVENING, ORAL
     Route: 048
     Dates: start: 20080101
  4. SYNTHROID [Concomitant]

REACTIONS (14)
  - DEPRESSION [None]
  - DRUG INEFFECTIVE [None]
  - MOOD SWINGS [None]
  - HAIR GROWTH ABNORMAL [None]
  - MENSTRUAL DISORDER [None]
  - DRUG EFFECT DECREASED [None]
  - PRODUCT QUALITY ISSUE [None]
  - VITAMIN D DECREASED [None]
  - MEDICATION ERROR [None]
  - ILL-DEFINED DISORDER [None]
  - CANDIDIASIS [None]
  - SURGERY [None]
  - MALAISE [None]
  - ABNORMAL BEHAVIOUR [None]
